FAERS Safety Report 13109635 (Version 1)
Quarter: 2017Q1

REPORT INFORMATION
  Report Type: Spontaneous
  Country: US (occurrence: US)
  Receive Date: 20170112
  Receipt Date: 20170112
  Transmission Date: 20170428
  Serious: No
  Sender: FDA-Public Use
  Company Number: US-TARO-2016TAR00690

PATIENT
  Sex: Female

DRUGS (2)
  1. CLOTRIMAZOLE VAGINAL CREAM USP 1% 7 DAY [Suspect]
     Active Substance: CLOTRIMAZOLE
     Dosage: UNK
     Dates: start: 201607
  2. METRONIDAZOLE GEL, 0.75% (DPT LABORATORIES, LTD) [Suspect]
     Active Substance: METRONIDAZOLE
     Dosage: UNK
     Dates: start: 201607

REACTIONS (2)
  - Vaginal discharge [Not Recovered/Not Resolved]
  - Inappropriate schedule of drug administration [Unknown]

NARRATIVE: CASE EVENT DATE: 20160810
